FAERS Safety Report 5464257-0 (Version None)
Quarter: 2007Q3

REPORT INFORMATION
  Report Type: 
  Country: None (occurrence: None)
  Receive Date: 20070921
  Receipt Date: 20070917
  Transmission Date: 20080115
  Serious: Yes (Life-Threatening, Hospitalization, Other)
  Sender: FDA-Public Use
  Company Number: A0665002A

PATIENT
  Age: 62 Year
  Sex: Female
  Weight: 113.6 kg

DRUGS (7)
  1. ARIXTRA [Suspect]
     Indication: DRUG USE FOR UNKNOWN INDICATION
     Route: 065
     Dates: start: 20060801, end: 20060801
  2. BENAZEPRIL HYDROCHLORIDE [Concomitant]
  3. THEOPHYLLINE [Concomitant]
  4. DILTIAZEM [Concomitant]
     Dosage: 240MG TWICE PER DAY
  5. SINGULAIR [Concomitant]
  6. ADVAIR DISKUS 100/50 [Concomitant]
  7. ALBUTEROL [Concomitant]

REACTIONS (4)
  - BLOOD DISORDER [None]
  - CARDIAC ARREST [None]
  - HAEMORRHAGE [None]
  - RETROPERITONEAL HAEMORRHAGE [None]
